FAERS Safety Report 14113024 (Version 36)
Quarter: 2024Q4

REPORT INFORMATION
  Report Type: Report from Study
  Country: CA (occurrence: CA)
  Receive Date: 20171022
  Receipt Date: 20241031
  Transmission Date: 20250114
  Serious: Yes (Life-Threatening, Hospitalization, Other)
  Sender: NOVARTIS
  Company Number: PHHY2017CA152629

PATIENT
  Age: 27 Year
  Sex: Female

DRUGS (32)
  1. COSENTYX [Suspect]
     Active Substance: SECUKINUMAB
     Indication: Psoriasis
     Dosage: 300 MG, QMO
     Route: 058
     Dates: start: 20160505
  2. COSENTYX [Suspect]
     Active Substance: SECUKINUMAB
     Dosage: 300 MG, QMO
     Route: 058
     Dates: start: 2017
  3. COSENTYX [Suspect]
     Active Substance: SECUKINUMAB
     Dosage: 300 MG, QMO
     Route: 058
     Dates: start: 20171003
  4. COSENTYX [Suspect]
     Active Substance: SECUKINUMAB
     Dosage: 300 MG, QMO
     Route: 058
     Dates: start: 20180215
  5. COSENTYX [Suspect]
     Active Substance: SECUKINUMAB
     Dosage: UNK (INJECTION)
     Route: 058
     Dates: start: 20180415
  6. COSENTYX [Suspect]
     Active Substance: SECUKINUMAB
     Dosage: 300 MG, QMO
     Route: 058
     Dates: start: 2022
  7. COSENTYX [Suspect]
     Active Substance: SECUKINUMAB
     Dosage: 300 MG, QMO (150MG X 2) (INJECTION)
     Route: 058
     Dates: start: 20221015
  8. COSENTYX [Suspect]
     Active Substance: SECUKINUMAB
     Dosage: 300 MG, QMO
     Route: 058
     Dates: start: 202210
  9. COSENTYX [Suspect]
     Active Substance: SECUKINUMAB
     Dosage: 300 MG, QMO
     Route: 058
     Dates: start: 20221025
  10. COSENTYX [Suspect]
     Active Substance: SECUKINUMAB
     Dosage: UNK (INJECTION)
     Route: 058
  11. COSENTYX [Suspect]
     Active Substance: SECUKINUMAB
     Dosage: UNK (INJECTION)
     Route: 058
  12. COSENTYX [Suspect]
     Active Substance: SECUKINUMAB
     Dosage: UNK, EMERGENCY DOSE
     Route: 058
  13. COSENTYX [Suspect]
     Active Substance: SECUKINUMAB
     Dosage: 300 MG, QMO (1 EVERY 1 MONTH)
     Route: 058
  14. COSENTYX [Suspect]
     Active Substance: SECUKINUMAB
     Dosage: UNK (INJECTION)
     Route: 058
  15. COSENTYX [Suspect]
     Active Substance: SECUKINUMAB
     Dosage: 300 MG, QMO (1 EVERY 1 MONTH)
     Route: 058
  16. COSENTYX [Suspect]
     Active Substance: SECUKINUMAB
     Dosage: 300 MG, QMO (1 EVERY 1 MONTH)
     Route: 058
  17. COSENTYX [Suspect]
     Active Substance: SECUKINUMAB
     Dosage: UNK (INJECTION)
     Route: 058
  18. COSENTYX [Suspect]
     Active Substance: SECUKINUMAB
     Dosage: 300 MG, QMO (1 EVERY 1 MONTH)
     Route: 058
  19. COSENTYX [Suspect]
     Active Substance: SECUKINUMAB
     Dosage: 300 MG, QMO (1 EVERY 1 MONTH)
     Route: 058
  20. COSENTYX [Suspect]
     Active Substance: SECUKINUMAB
     Dosage: UNK (EXTRA DOSE)
     Route: 058
     Dates: start: 20230919
  21. CYCLOSPORINE [Suspect]
     Active Substance: CYCLOSPORINE
     Indication: Product used for unknown indication
     Dosage: 150 MG, BID
     Route: 065
     Dates: start: 201601
  22. CYCLOSPORINE [Suspect]
     Active Substance: CYCLOSPORINE
     Dosage: 2 DOSAGE FORM, QD (2 EVERY 1 DAY)
     Route: 065
  23. CYCLOSPORINE [Suspect]
     Active Substance: CYCLOSPORINE
     Dosage: 2 DOSAGE FORM, QD (2 EVERY 1 DAY)
     Route: 065
  24. METHOTREXATE [Suspect]
     Active Substance: METHOTREXATE
     Indication: Product used for unknown indication
     Dosage: UNK
     Route: 065
     Dates: start: 201510, end: 201510
  25. METHOTREXATE SODIUM [Suspect]
     Active Substance: METHOTREXATE SODIUM
     Indication: Product used for unknown indication
     Dosage: UNK
     Route: 065
  26. BETAMETHASONE DIPROPIONATE [Concomitant]
     Active Substance: BETAMETHASONE DIPROPIONATE
     Indication: Product used for unknown indication
     Dosage: UNK, BID (2 EVERY 1 DAYS)
     Route: 065
  27. CALCIPOTRIENE [Concomitant]
     Active Substance: CALCIPOTRIENE
     Indication: Product used for unknown indication
     Dosage: UNK, BID
     Route: 065
  28. SALICYLIC ACID [Concomitant]
     Active Substance: SALICYLIC ACID
     Indication: Product used for unknown indication
     Dosage: UNK
     Route: 065
  29. BETAMETHASONE DIPROPIONATE\CALCIPOTRIENE MONOHYDRATE [Concomitant]
     Active Substance: BETAMETHASONE DIPROPIONATE\CALCIPOTRIENE MONOHYDRATE
     Indication: Product used for unknown indication
     Dosage: UNK, BID
     Route: 065
  30. HYDROCORTISONE [Concomitant]
     Active Substance: HYDROCORTISONE
     Indication: Product used for unknown indication
     Dosage: UNK
     Route: 065
  31. BETADERM [Concomitant]
     Active Substance: BETAMETHASONE VALERATE
     Indication: Product used for unknown indication
     Dosage: UNK
     Route: 065
  32. COAL TAR [Concomitant]
     Active Substance: COAL TAR
     Indication: Product used for unknown indication
     Dosage: UNK
     Route: 065

REACTIONS (41)
  - Feeling abnormal [Not Recovered/Not Resolved]
  - Movement disorder [Not Recovered/Not Resolved]
  - Gallbladder disorder [Not Recovered/Not Resolved]
  - Pneumonia aspiration [Not Recovered/Not Resolved]
  - Hepatic failure [Not Recovered/Not Resolved]
  - Anaemia macrocytic [Not Recovered/Not Resolved]
  - Abdominal discomfort [Not Recovered/Not Resolved]
  - Loss of consciousness [Not Recovered/Not Resolved]
  - Psoriatic arthropathy [Not Recovered/Not Resolved]
  - Pain [Not Recovered/Not Resolved]
  - Cardiac disorder [Not Recovered/Not Resolved]
  - Ankle fracture [Not Recovered/Not Resolved]
  - Osteoporosis [Not Recovered/Not Resolved]
  - Limb discomfort [Not Recovered/Not Resolved]
  - Product distribution issue [Not Recovered/Not Resolved]
  - Psoriasis [Not Recovered/Not Resolved]
  - Rash [Unknown]
  - Skin fissures [Not Recovered/Not Resolved]
  - Pruritus [Not Recovered/Not Resolved]
  - Illness [Not Recovered/Not Resolved]
  - Onychoclasis [Unknown]
  - Poor quality product administered [Not Recovered/Not Resolved]
  - Product complaint [Not Recovered/Not Resolved]
  - Product storage error [Not Recovered/Not Resolved]
  - Inappropriate schedule of product administration [Not Recovered/Not Resolved]
  - Drug ineffective [Not Recovered/Not Resolved]
  - Device defective [Not Recovered/Not Resolved]
  - Panic attack [Unknown]
  - Diarrhoea [Unknown]
  - Emotional distress [Unknown]
  - Device issue [Unknown]
  - Road traffic accident [Unknown]
  - Dry mouth [Unknown]
  - Fatigue [Unknown]
  - Insomnia [Unknown]
  - Wound [Unknown]
  - Contusion [Unknown]
  - Dizziness [Unknown]
  - Stress [Unknown]
  - Device malfunction [Unknown]
  - Weight decreased [Unknown]

NARRATIVE: CASE EVENT DATE: 20160505
